FAERS Safety Report 16347374 (Version 2)
Quarter: 2019Q2

REPORT INFORMATION
  Report Type: Spontaneous
  Country: US (occurrence: US)
  Receive Date: 20190523
  Receipt Date: 20190528
  Transmission Date: 20190711
  Serious: No
  Sender: FDA-Public Use
  Company Number: PHEH2019US020868

PATIENT
  Sex: Female

DRUGS (1)
  1. CLOBETASOL PROPIONATE. [Suspect]
     Active Substance: CLOBETASOL PROPIONATE
     Indication: VULVOVAGINAL DRYNESS
     Route: 067

REACTIONS (3)
  - Vulvovaginal swelling [Unknown]
  - Vulvovaginal discomfort [Unknown]
  - Drug ineffective [Unknown]
